FAERS Safety Report 10983454 (Version 1)
Quarter: 2015Q2

REPORT INFORMATION
  Report Type: Report from Study
  Country: GB (occurrence: GB)
  Receive Date: 20150403
  Receipt Date: 20150403
  Transmission Date: 20150821
  Serious: Yes (Life-Threatening, Hospitalization)
  Sender: FDA-Public Use
  Company Number: GB-009507513-1504GBR000289

PATIENT
  Age: 68 Year
  Sex: Male

DRUGS (2)
  1. VORINOSTAT [Suspect]
     Active Substance: VORINOSTAT
     Indication: ACUTE MYELOID LEUKAEMIA
     Dosage: 300 MG, BID
     Route: 048
     Dates: start: 20140226, end: 20140304
  2. AZACITIDINE. [Suspect]
     Active Substance: AZACITIDINE
     Indication: ACUTE MYELOID LEUKAEMIA
     Dosage: 170 MG/M2, QD
     Route: 058
     Dates: start: 20140224, end: 20140304

REACTIONS (1)
  - Neutropenic sepsis [Recovered/Resolved]

NARRATIVE: CASE EVENT DATE: 20140318
